FAERS Safety Report 21983026 (Version 2)
Quarter: 2023Q1

REPORT INFORMATION
  Report Type: Report from Study
  Country: US (occurrence: US)
  Receive Date: 20230213
  Receipt Date: 20230216
  Transmission Date: 20230417
  Serious: No
  Sender: FDA-Public Use
  Company Number: US-002147023-NVSC2023US032222

PATIENT
  Sex: Male

DRUGS (1)
  1. TREPROSTINIL [Suspect]
     Active Substance: TREPROSTINIL
     Indication: Pulmonary arterial hypertension
     Dosage: UNK (86 NG/KG/MIN)
     Route: 042
     Dates: start: 20220617

REACTIONS (4)
  - Bladder pain [Unknown]
  - Pollakiuria [Unknown]
  - Insomnia [Unknown]
  - Dyspnoea [Unknown]
